FAERS Safety Report 8028059-3 (Version None)
Quarter: 2012Q1

REPORT INFORMATION
  Report Type: 
  Country: None (occurrence: None)
  Receive Date: 20120106
  Receipt Date: 20111229
  Transmission Date: 20120608
  Serious: Yes (Death)
  Sender: FDA-Public Use
  Company Number: US-ABBOTT-11P-163-0887904-00

PATIENT
  Age: 55 Year
  Sex: Female

DRUGS (4)
  1. ZIPRASIDONE HYDROCHLORIDE [Suspect]
     Indication: PRODUCT USED FOR UNKNOWN INDICATION
     Dosage: INGESTION
  2. VALPROIC ACID [Suspect]
     Indication: PRODUCT USED FOR UNKNOWN INDICATION
     Dosage: INGESTION
  3. CYCLOBENZAPRINE [Suspect]
     Indication: PRODUCT USED FOR UNKNOWN INDICATION
     Dosage: INGESTION
  4. BENZTROPINE MESYLATE [Suspect]
     Indication: PRODUCT USED FOR UNKNOWN INDICATION
     Dosage: INGESTION

REACTIONS (1)
  - COMPLETED SUICIDE [None]
